FAERS Safety Report 18167380 (Version 1)
Quarter: 2020Q3

REPORT INFORMATION
  Report Type: Spontaneous
  Country: US (occurrence: US)
  Receive Date: 20200818
  Receipt Date: 20200818
  Transmission Date: 20201103
  Serious: Yes (Death)
  Sender: FDA-Public Use
  Company Number: None

PATIENT
  Age: 76 Year
  Sex: Female
  Weight: 60.9 kg

DRUGS (14)
  1. AZITHROMYCIN ANHYDROUS. [Concomitant]
     Active Substance: AZITHROMYCIN ANHYDROUS
     Dates: start: 20200804, end: 20200807
  2. CEFTRIAXONE. [Concomitant]
     Active Substance: CEFTRIAXONE
     Dates: start: 20200804, end: 20200809
  3. REMDESIVIR. [Suspect]
     Active Substance: REMDESIVIR
     Indication: COVID-19
     Dosage: ?          OTHER FREQUENCY:ONCE;?
     Route: 041
     Dates: start: 20200808, end: 20200808
  4. ENOXAPARIN [Concomitant]
     Active Substance: ENOXAPARIN
     Dates: start: 20200805, end: 20200809
  5. FORMOTEROL [Concomitant]
     Active Substance: FORMOTEROL
     Dates: start: 20200806, end: 20200809
  6. IPRATROPIUM [Concomitant]
     Active Substance: IPRATROPIUM
     Dates: start: 20200804, end: 20200809
  7. SIMVASTATIN. [Concomitant]
     Active Substance: SIMVASTATIN
     Dates: start: 20200804, end: 20200809
  8. OLANZAPINE. [Concomitant]
     Active Substance: OLANZAPINE
     Dates: start: 20200807, end: 20200809
  9. HALOPERIDOL. [Concomitant]
     Active Substance: HALOPERIDOL
     Dates: start: 20200809, end: 20200809
  10. LORAZEPAM. [Concomitant]
     Active Substance: LORAZEPAM
     Dates: start: 20200804, end: 20200809
  11. POLYETHYLENE GLYCOL 3350. [Concomitant]
     Active Substance: POLYETHYLENE GLYCOL 3350
     Dates: start: 20200807, end: 20200809
  12. DILTIAZEM. [Concomitant]
     Active Substance: DILTIAZEM
     Dates: start: 20200809, end: 20200809
  13. METHYLPREDNISOLONE. [Concomitant]
     Active Substance: METHYLPREDNISOLONE
     Dates: start: 20200805, end: 20200809
  14. MOMETASONE [Concomitant]
     Active Substance: MOMETASONE
     Dates: start: 20200806, end: 20200809

REACTIONS (1)
  - Death [None]

NARRATIVE: CASE EVENT DATE: 20200809
